FAERS Safety Report 18762589 (Version 1)
Quarter: 2021Q1

REPORT INFORMATION
  Report Type: Spontaneous
  Country: US (occurrence: US)
  Receive Date: 20210120
  Receipt Date: 20210120
  Transmission Date: 20210419
  Serious: No
  Sender: FDA-Public Use
  Company Number: US-009507513-2101USA006820

PATIENT
  Sex: Female

DRUGS (1)
  1. NUVARING [Suspect]
     Active Substance: ETHINYL ESTRADIOL\ETONOGESTREL
     Dosage: 0.015/0.12 MG, 1 RING
     Route: 067

REACTIONS (3)
  - Inappropriate schedule of product administration [Unknown]
  - Unintentional medical device removal [Unknown]
  - No adverse event [Unknown]

NARRATIVE: CASE EVENT DATE: 20210111
